FAERS Safety Report 6932851-3 (Version None)
Quarter: 2010Q3

REPORT INFORMATION
  Report Type: 
  Country: None (occurrence: None)
  Receive Date: 20100819
  Receipt Date: 20100809
  Transmission Date: 20110219
  Serious: Yes (Hospitalization)
  Sender: FDA-Public Use
  Company Number: US-WATSON-2010-10739

PATIENT
  Sex: Female
  Weight: 85.261 kg

DRUGS (4)
  1. ALENDRONATE SODIUM [Suspect]
     Indication: OSTEOPENIA
     Dosage: 70 MG, 1/WEEK
     Route: 048
     Dates: start: 20080101, end: 20100601
  2. ALENDRONATE SODIUM [Suspect]
     Indication: OSTEOPOROSIS
  3. ALENDRONATE SODIUM [Suspect]
     Indication: OSTEOPOROSIS
     Dosage: 70 MG, 1/WEEK
     Route: 048
     Dates: start: 20090201, end: 20100601
  4. ALENDRONATE SODIUM [Suspect]
     Indication: OSTEOPENIA

REACTIONS (10)
  - ARTHRALGIA [None]
  - BONE PAIN [None]
  - FEMUR FRACTURE [None]
  - GROIN PAIN [None]
  - IMPLANT SITE REACTION [None]
  - MUSCLE SPASMS [None]
  - MYALGIA [None]
  - OSTEOARTHRITIS [None]
  - PUPILLARY LIGHT REFLEX TESTS ABNORMAL [None]
  - VISUAL IMPAIRMENT [None]
